FAERS Safety Report 5735179-2 (Version None)
Quarter: 2008Q2

REPORT INFORMATION
  Report Type: 
  Country: None (occurrence: None)
  Receive Date: 20080508
  Receipt Date: 20080508
  Transmission Date: 20081010
  Serious: No
  Sender: FDA-Public Use
  Company Number: None

PATIENT
  Age: 52 Year
  Sex: Female
  Weight: 49.8957 kg

DRUGS (2)
  1. CREST PRO HEALTH RINSE PROCTOR AND GAMBLE [Suspect]
     Indication: DENTAL DISORDER PROPHYLAXIS
     Dosage: 2 TBSP. DAILY PO
     Route: 048
     Dates: start: 20080414, end: 20080416
  2. CREST PRO HEALTH RINSE PROCTOR AND GAMBLE [Suspect]
     Indication: DENTAL PLAQUE
     Dosage: 2 TBSP. DAILY PO
     Route: 048
     Dates: start: 20080414, end: 20080416

REACTIONS (1)
  - TOOTH DISCOLOURATION [None]
